FAERS Safety Report 25965104 (Version 1)
Quarter: 2025Q4

REPORT INFORMATION
  Report Type: Report from Study
  Country: EU (occurrence: EU)
  Receive Date: 20251027
  Receipt Date: 20251027
  Transmission Date: 20260118
  Serious: Yes (Hospitalization)
  Sender: SERVIER
  Company Number: EU-SERVIER-S25010659

PATIENT

DRUGS (9)
  1. PEGASPARGASE [Suspect]
     Active Substance: PEGASPARGASE
     Indication: Acute lymphocytic leukaemia
     Dosage: 1612.5 IU
     Route: 065
     Dates: start: 20190122
  2. PEGASPARGASE [Suspect]
     Active Substance: PEGASPARGASE
     Dosage: 3300 IU, D15 AND D43
     Route: 042
     Dates: start: 20190322, end: 20190429
  3. MERCAPTOPURINE [Suspect]
     Active Substance: MERCAPTOPURINE
     Indication: Acute lymphocytic leukaemia
     Dosage: 50 MG, D1-D14 AND D29-D42
     Route: 048
     Dates: start: 20190222, end: 20190321
  4. CYCLOPHOSPHAMIDE [Suspect]
     Active Substance: CYCLOPHOSPHAMIDE
     Indication: Acute lymphocytic leukaemia
     Dosage: 1300  MG, D1 AND D29
     Route: 042
     Dates: start: 20190222, end: 20190405
  5. CYTARABINE [Suspect]
     Active Substance: CYTARABINE
     Indication: Acute lymphocytic leukaemia
     Dosage: 95  MG, D3, D4, D5, D10, D12, D31, D32
     Route: 042
     Dates: start: 20190225, end: 20190406
  6. CYTARABINE [Suspect]
     Active Substance: CYTARABINE
     Dosage: 30 MG, D3 AND D31
     Route: 037
     Dates: start: 20190225, end: 20190408
  7. METHOTREXATE [Suspect]
     Active Substance: METHOTREXATE
     Indication: Acute lymphocytic leukaemia
     Dosage: 15 MG, D3 AND D31
     Route: 037
     Dates: start: 20190225, end: 20190408
  8. HYDROCORTISONE [Suspect]
     Active Substance: HYDROCORTISONE
     Indication: Acute lymphocytic leukaemia
     Dosage: 15 MG, D3 AND D31
     Route: 037
     Dates: start: 20190225, end: 20190408
  9. VINCRISTINE [Suspect]
     Active Substance: VINCRISTINE
     Indication: Acute lymphocytic leukaemia
     Dosage: 1.9 MG, D15, D43 AND D50
     Route: 042
     Dates: start: 20190322, end: 20190506

REACTIONS (2)
  - Herpes zoster [Recovered/Resolved]
  - Oedema peripheral [Recovered/Resolved]

NARRATIVE: CASE EVENT DATE: 20190227
